FAERS Safety Report 18777868 (Version 2)
Quarter: 2021Q1

REPORT INFORMATION
  Report Type: Spontaneous
  Country: US (occurrence: US)
  Receive Date: 20210122
  Receipt Date: 20210122
  Transmission Date: 20210419
  Serious: No
  Sender: FDA-Public Use
  Company Number: 2020SGN03442

PATIENT
  Sex: Female

DRUGS (2)
  1. TUKYSA [Suspect]
     Active Substance: TUCATINIB
     Indication: BREAST CANCER FEMALE
  2. XELODA [Concomitant]
     Active Substance: CAPECITABINE
     Indication: BREAST CANCER FEMALE

REACTIONS (10)
  - Diarrhoea [Unknown]
  - Constipation [Unknown]
  - Memory impairment [Unknown]
  - Rash [Unknown]
  - Illness [Unknown]
  - Nausea [Unknown]
  - Malaise [Unknown]
  - Product dose omission issue [Unknown]
  - Dyspepsia [Unknown]
  - Dry skin [Unknown]
